FAERS Safety Report 5287773-3 (Version None)
Quarter: 2007Q2

REPORT INFORMATION
  Report Type: 
  Country: None (occurrence: None)
  Receive Date: 20070402
  Receipt Date: 20070402
  Transmission Date: 20071010
  Serious: Yes (Hospitalization)
  Sender: FDA-Public Use
  Company Number: None

PATIENT
  Age: 37 Year
  Sex: Male
  Weight: 86.1834 kg

DRUGS (2)
  1. MEROPENEM [Suspect]
     Indication: IATROGENIC INFECTION
     Dates: start: 20070312, end: 20070319
  2. MEROPENEM [Suspect]
     Indication: KLEBSIELLA BACTERAEMIA
     Dates: start: 20070312, end: 20070319

REACTIONS (1)
  - LIVER FUNCTION TEST ABNORMAL [None]
